FAERS Safety Report 20633766 (Version 1)
Quarter: 2022Q1

REPORT INFORMATION
  Report Type: Report from Study
  Country: DE (occurrence: None)
  Receive Date: 20220324
  Receipt Date: 20220324
  Transmission Date: 20220423
  Serious: Yes (Hospitalization)
  Sender: FDA-Public Use
  Company Number: DE-ROCHE-3049775

PATIENT
  Age: 62 Year
  Sex: Male

DRUGS (4)
  1. OBINUTUZUMAB [Suspect]
     Active Substance: OBINUTUZUMAB
     Indication: Chronic lymphocytic leukaemia
     Dosage: LAST DOSE PRIOR TO AE: 27/DEC/2019 (1000 MG)
     Route: 042
     Dates: start: 20190626
  2. VENETOCLAX [Suspect]
     Active Substance: VENETOCLAX
     Indication: Chronic lymphocytic leukaemia
     Dosage: LAST DOSE PRIOR TO AE: 09/JUL/2020 (400 MG)
     Route: 048
     Dates: start: 20190717
  3. IMDEVIMAB [Concomitant]
     Active Substance: IMDEVIMAB
     Route: 042
     Dates: start: 20211204, end: 20211204
  4. CASIRIVIMAB [Concomitant]
     Active Substance: CASIRIVIMAB
     Route: 042
     Dates: start: 20211204, end: 20211204

REACTIONS (1)
  - COVID-19 [Recovered/Resolved]

NARRATIVE: CASE EVENT DATE: 20211203
